FAERS Safety Report 9425814 (Version 1)
Quarter: 2013Q3

REPORT INFORMATION
  Report Type: Spontaneous
  Country: FR (occurrence: FR)
  Receive Date: 20130729
  Receipt Date: 20130729
  Transmission Date: 20140515
  Serious: Yes (Hospitalization)
  Sender: FDA-Public Use
  Company Number: FR-009507513-1307FRA012624

PATIENT
  Age: 34 Year
  Sex: Male

DRUGS (2)
  1. MAXALT [Suspect]
     Indication: MIGRAINE
     Dosage: 10 MG, QD
     Route: 048
     Dates: start: 20110712, end: 20110713
  2. ZOMIG [Suspect]
     Indication: MIGRAINE
     Dosage: 2.5 MG, QD
     Route: 048
     Dates: start: 20110713, end: 20110713

REACTIONS (1)
  - Vasospasm [Not Recovered/Not Resolved]
